FAERS Safety Report 5338485-9 (Version None)
Quarter: 2007Q2

REPORT INFORMATION
  Report Type: 
  Country: None (occurrence: None)
  Receive Date: 20070405
  Receipt Date: 20061109
  Transmission Date: 20071010
  Serious: No
  Sender: FDA-Public Use
  Company Number: US200611001904

PATIENT
  Age: 19 Year
  Sex: Female

DRUGS (3)
  1. CYMBALTA [Suspect]
     Indication: OBSESSIVE-COMPULSIVE DISORDER
     Dosage: 20 MG
     Dates: start: 20060101, end: 20061109
  2. GABAPENTIN [Concomitant]
  3. TRILEPTAL [Concomitant]

REACTIONS (2)
  - GASTROINTESTINAL DISORDER [None]
  - HEADACHE [None]
